FAERS Safety Report 4653421-6 (Version None)
Quarter: 2005Q2

REPORT INFORMATION
  Report Type: 
  Country: None (occurrence: None)
  Receive Date: 20050505
  Receipt Date: 20050408
  Transmission Date: 20051028
  Serious: Yes (Hospitalization)
  Sender: FDA-Public Use
  Company Number: GB-GLAXOSMITHKLINE-B0377982A

PATIENT
  Age: 62 Year
  Sex: Male

DRUGS (8)
  1. NIQUITIN CQ PATCH [Suspect]
     Dosage: 21MG PER DAY
     Route: 062
     Dates: start: 20050329, end: 20050402
  2. PERINDOPRIL [Concomitant]
     Route: 048
  3. ASPIRIN [Concomitant]
     Dosage: 300MG PER DAY
     Route: 048
  4. DIPYRIDAMOLE [Concomitant]
     Dosage: 200MG TWICE PER DAY
     Route: 048
  5. LUSTRAL [Concomitant]
     Dosage: 50MG PER DAY
     Route: 048
  6. ATORVASTATIN CALCIUM [Concomitant]
     Dosage: 40MG AT NIGHT
     Route: 048
  7. PARACETAMOL [Concomitant]
     Dosage: 500MG AS REQUIRED
     Route: 048
  8. DIHYDROCODEINE BITARTRATE INJ [Concomitant]
     Dosage: 30MG AS REQUIRED
     Route: 048

REACTIONS (4)
  - CEREBROVASCULAR ACCIDENT [None]
  - DIZZINESS [None]
  - HYPERHIDROSIS [None]
  - NAUSEA [None]
